FAERS Safety Report 7898715-6 (Version None)
Quarter: 2011Q4

REPORT INFORMATION
  Report Type: 
  Country: None (occurrence: None)
  Receive Date: 20111107
  Receipt Date: 20101129
  Transmission Date: 20120403
  Serious: No
  Sender: FDA-Public Use
  Company Number: US-ABBOTT-10P-163-0669979-00

PATIENT
  Age: 63 Year
  Sex: Female

DRUGS (1)
  1. FENOFIBRATE [Suspect]
     Indication: BLOOD CHOLESTEROL

REACTIONS (1)
  - SKIN DISORDER [None]
